FAERS Safety Report 18342020 (Version 2)
Quarter: 2020Q4

REPORT INFORMATION
  Report Type: Spontaneous
  Country: IT (occurrence: IT)
  Receive Date: 20201005
  Receipt Date: 20201006
  Transmission Date: 20210113
  Serious: Yes (Hospitalization)
  Sender: FDA-Public Use
  Company Number: IT-BRISTOL-MYERS SQUIBB COMPANY-BMS-2020-078743

PATIENT
  Age: 64 Year
  Sex: Male

DRUGS (5)
  1. KEPPRA [Concomitant]
     Active Substance: LEVETIRACETAM
     Indication: METASTASES TO BONE
     Dosage: UNK
     Route: 065
  2. PANTORC [Concomitant]
     Active Substance: PANTOPRAZOLE SODIUM
     Indication: PRODUCT USED FOR UNKNOWN INDICATION
     Dosage: UNK
     Route: 065
  3. LOSARTAN ACTAVIS [Concomitant]
     Active Substance: LOSARTAN
     Indication: ACCELERATED HYPERTENSION
     Dosage: 100 MILLIGRAM
     Route: 065
  4. OPDIVO [Suspect]
     Active Substance: NIVOLUMAB
     Indication: METASTATIC MALIGNANT MELANOMA
     Dosage: 240 MILLIGRAM 1 CYCLICAL
     Route: 042
     Dates: start: 20180717, end: 20181109
  5. TERAPROST [Concomitant]
     Active Substance: TERAZOSIN HYDROCHLORIDE
     Indication: BENIGN PROSTATIC HYPERPLASIA
     Dosage: UNK
     Route: 065

REACTIONS (3)
  - Hypertransaminasaemia [Recovered/Resolved]
  - Lipase increased [Recovered/Resolved]
  - Amylase increased [Recovered/Resolved]

NARRATIVE: CASE EVENT DATE: 20181207
